FAERS Safety Report 4846965-5 (Version None)
Quarter: 2005Q4

REPORT INFORMATION
  Report Type: 
  Country: None (occurrence: None)
  Receive Date: 20051201
  Receipt Date: 20051118
  Transmission Date: 20060501
  Serious: Yes (Hospitalization, Other)
  Sender: FDA-Public Use
  Company Number: 219495

PATIENT
  Age: 33 Year
  Sex: Female

DRUGS (1)
  1. RAPTIVA [Suspect]
     Indication: PSORIASIS
     Dosage: 0.4 ML,1/WEEK, SUBCUTANEOUS
     Route: 058
     Dates: start: 20051112

REACTIONS (2)
  - MENINGITIS ASEPTIC [None]
  - MENINGITIS VIRAL [None]
